FAERS Safety Report 9760280 (Version 1)
Quarter: 2013Q4

REPORT INFORMATION
  Report Type: Spontaneous
  Country: US (occurrence: US)
  Receive Date: 20131216
  Receipt Date: 20131216
  Transmission Date: 20140711
  Serious: No
  Sender: FDA-Public Use
  Company Number: US-GILEAD-2010-0028937

PATIENT
  Age: 46 Year
  Sex: Female
  Weight: 89.81 kg

DRUGS (9)
  1. LETAIRIS [Suspect]
     Indication: PULMONARY ARTERIAL HYPERTENSION
     Route: 048
  2. ZOLOFT [Concomitant]
  3. FUROSEMIDE [Concomitant]
  4. ALLEGRA [Concomitant]
  5. AMOXICILLIN [Concomitant]
  6. IBUPROFEN [Concomitant]
  7. FLONASE [Concomitant]
  8. SYMBICORT [Concomitant]
  9. MIRAPEX [Concomitant]

REACTIONS (1)
  - Nasal congestion [Not Recovered/Not Resolved]
